FAERS Safety Report 15436664 (Version 16)
Quarter: 2020Q4

REPORT INFORMATION
  Report Type: Spontaneous
  Country: US (occurrence: US)
  Receive Date: 20180927
  Receipt Date: 20201218
  Transmission Date: 20210113
  Serious: Yes (Hospitalization, Disabling, Other)
  Sender: FDA-Public Use
  Company Number: US-PFIZER INC-2018390674

PATIENT
  Age: 84 Year
  Sex: Female
  Weight: 54.88 kg

DRUGS (5)
  1. CELEBREX [Suspect]
     Active Substance: CELECOXIB
     Indication: ARTHRITIS
     Dosage: 200 MG, 2X/DAY (ONCE IN THE MORNING AND ONCE AT NIGHT)
     Route: 048
     Dates: start: 1999
  2. LABETALOL [Concomitant]
     Active Substance: LABETALOL\LABETALOL HYDROCHLORIDE
     Dosage: 700 MG, DAILY (300 MG AM, 400 MG PM)
  3. CELEBREX [Suspect]
     Active Substance: CELECOXIB
     Dosage: UNK
  4. CELEBREX [Suspect]
     Active Substance: CELECOXIB
     Dosage: 200 MG, 1X/DAY
     Route: 048
  5. MICARDIS [Concomitant]
     Active Substance: TELMISARTAN
     Dosage: 40 MG, 1X/DAY (IN THE PM)
     Dates: start: 20181009

REACTIONS (11)
  - Product prescribing error [Unknown]
  - Pain [Recovered/Resolved]
  - Movement disorder [Not Recovered/Not Resolved]
  - Hypertension [Unknown]
  - Confusional state [Unknown]
  - Neoplasm malignant [Unknown]
  - Body height decreased [Unknown]
  - Product expiration date issue [Unknown]
  - Gait disturbance [Unknown]
  - Road traffic accident [Unknown]
  - Upper limb fracture [Unknown]

NARRATIVE: CASE EVENT DATE: 2015
